APPROVED DRUG PRODUCT: EPROSARTAN MESYLATE
Active Ingredient: EPROSARTAN MESYLATE
Strength: EQ 600MG BASE
Dosage Form/Route: TABLET;ORAL
Application: A202012 | Product #002
Applicant: PHARMOBEDIENT CONSULTING LLC
Approved: Nov 16, 2011 | RLD: No | RS: No | Type: DISCN